FAERS Safety Report 19739490 (Version 1)
Quarter: 2021Q3

REPORT INFORMATION
  Report Type: Spontaneous
  Country: CA (occurrence: CA)
  Receive Date: 20210824
  Receipt Date: 20210824
  Transmission Date: 20211014
  Serious: Yes (Other)
  Sender: FDA-Public Use
  Company Number: CA-TEVA-2021-CA-1943835

PATIENT
  Age: 31 Week
  Sex: Male
  Weight: 78 kg

DRUGS (1)
  1. TEVA?DUTASTERIDE SOFT GELATIN CAPSULE [Suspect]
     Active Substance: DUTASTERIDE
     Indication: ALOPECIA
     Route: 048

REACTIONS (6)
  - Muscle atrophy [Not Recovered/Not Resolved]
  - Amnesia [Not Recovered/Not Resolved]
  - Personality change [Not Recovered/Not Resolved]
  - Memory impairment [Not Recovered/Not Resolved]
  - Anhedonia [Not Recovered/Not Resolved]
  - Communication disorder [Not Recovered/Not Resolved]
